FAERS Safety Report 5550578-X (Version None)
Quarter: 2007Q4

REPORT INFORMATION
  Report Type: 
  Country: None (occurrence: None)
  Receive Date: 20071212
  Receipt Date: 20071203
  Transmission Date: 20080405
  Serious: Yes (Death, Life-Threatening, Hospitalization, Other)
  Sender: FDA-Public Use
  Company Number: SE-ELI_LILLY_AND_COMPANY-SE200707001021

PATIENT
  Sex: Female
  Weight: 55.8 kg

DRUGS (10)
  1. PEMETREXED [Suspect]
     Indication: LUNG NEOPLASM MALIGNANT
     Dosage: 762.5 MG, EVERY 21 DAYS
     Route: 042
     Dates: start: 20070316
  2. VITAMINS WITH MINERALS [Concomitant]
     Indication: SUPPLEMENTATION THERAPY
     Dates: start: 20070305
  3. OMEPRAZOLE [Concomitant]
     Indication: DYSPEPSIA
     Dates: start: 20070305
  4. BETAMETHASONE [Concomitant]
     Indication: METASTASES TO CENTRAL NERVOUS SYSTEM
     Dates: start: 20070321
  5. FLUKONAZOL [Concomitant]
     Indication: CANDIDIASIS
     Dates: start: 20070410
  6. CODEINE W/PARACETAMOL [Concomitant]
     Indication: PAIN
     Dosage: UNK, UNK
     Dates: start: 20060726
  7. FENTANYL [Concomitant]
     Indication: PAIN
     Dates: start: 20061114
  8. PREGABALIN [Concomitant]
     Indication: PAIN
     Dates: start: 20070305
  9. PROPIOMAZINE [Concomitant]
     Indication: SLEEP DISORDER
     Dates: start: 20070405, end: 20070416
  10. LIDOCAINE [Concomitant]
     Indication: PAIN
     Dates: start: 20070410

REACTIONS (5)
  - CHRONIC OBSTRUCTIVE PULMONARY DISEASE [None]
  - DYSPNOEA [None]
  - FEBRILE NEUTROPENIA [None]
  - LYMPHANGITIS [None]
  - THROMBOCYTOPENIA [None]
